FAERS Safety Report 25361932 (Version 1)
Quarter: 2025Q2

REPORT INFORMATION
  Report Type: Spontaneous
  Country: US (occurrence: US)
  Receive Date: 20250527
  Receipt Date: 20250527
  Transmission Date: 20250716
  Serious: Yes (Other)
  Sender: SANOFI AVENTIS
  Company Number: US-DialogSolutions-SAAVPROD-PI771114-C1

PATIENT
  Age: 39 Year
  Sex: Female

DRUGS (6)
  1. PREDNISONE [Suspect]
     Active Substance: PREDNISONE
     Indication: Pemphigoid gestationis
     Dosage: 60 MG, QD
  2. PREDNISONE [Suspect]
     Active Substance: PREDNISONE
     Dosage: 2.5 MG, QOD
  3. PREDNISONE [Suspect]
     Active Substance: PREDNISONE
     Dosage: 10 MG, QD
  4. PREDNISONE [Suspect]
     Active Substance: PREDNISONE
  5. DUPILUMAB [Suspect]
     Active Substance: DUPILUMAB
     Indication: Pemphigoid gestationis
     Dosage: 300 MG, QOW
     Route: 058
  6. HYDROCORTISONE [Suspect]
     Active Substance: HYDROCORTISONE
     Indication: Pemphigoid gestationis
     Route: 042

REACTIONS (7)
  - Pemphigoid gestationis [Recovered/Resolved]
  - Pruritus [Recovered/Resolved]
  - Papule [Recovered/Resolved]
  - Type 1 diabetes mellitus [Recovered/Resolved]
  - Off label use [Unknown]
  - Exposure during pregnancy [Unknown]
  - Drug effective for unapproved indication [Unknown]
